FAERS Safety Report 6217598-3 (Version None)
Quarter: 2009Q2

REPORT INFORMATION
  Report Type: 
  Country: None (occurrence: None)
  Receive Date: 20090608
  Receipt Date: 20090408
  Transmission Date: 20091009
  Serious: No
  Sender: FDA-Public Use
  Company Number: A0775352A

PATIENT
  Sex: Female

DRUGS (4)
  1. WELLBUTRIN XL [Suspect]
     Indication: DEPRESSION
     Dosage: 1200MG PER DAY
     Route: 048
     Dates: start: 19970101
  2. ZANTAC [Concomitant]
  3. SEPTRA [Concomitant]
  4. ZEGERID [Concomitant]

REACTIONS (3)
  - DRUG INEFFECTIVE [None]
  - OVERDOSE [None]
  - THERAPEUTIC RESPONSE DECREASED [None]
